FAERS Safety Report 16001207 (Version 6)
Quarter: 2020Q4

REPORT INFORMATION
  Report Type: Spontaneous
  Country: US (occurrence: US)
  Receive Date: 20190225
  Receipt Date: 20201023
  Transmission Date: 20210113
  Serious: Yes (Hospitalization, Other)
  Sender: FDA-Public Use
  Company Number: US-PFIZER INC-2018490511

PATIENT
  Age: 70 Year
  Sex: Female
  Weight: 83.91 kg

DRUGS (5)
  1. ADVAIR HFA [Concomitant]
     Active Substance: FLUTICASONE PROPIONATE\SALMETEROL XINAFOATE
     Indication: ASTHMA
     Dosage: 1 DF, 2X/DAY (500/50, DISKUS, 1 INHALATION TWICE DAILY, ONCE IN THE MORNING AND ONCE IN THE EVENING)
     Route: 055
     Dates: start: 2001
  2. TIKOSYN [Suspect]
     Active Substance: DOFETILIDE
     Indication: ATRIAL FLUTTER
     Dosage: 0.25 MG, 2X/DAY (250MCG (1 CAPSULE) TWICE DAILY, ONCE IN THE MORNING AND EVENING)
     Dates: start: 2011
  3. COUMADIN [Concomitant]
     Active Substance: WARFARIN SODIUM
     Indication: ATRIAL FIBRILLATION
     Dosage: 5 MG, 1X/DAY AT NIGHT
     Route: 048
     Dates: start: 2011
  4. NITROSTAT [Concomitant]
     Active Substance: NITROGLYCERIN
     Indication: CHEST PAIN
     Dosage: 0.4 MG, AS NEEDED [0.4MG, 1 TABLET AS NEEDED, NOT MORE THAN 5 MINUTES APART]
     Route: 048
  5. TIKOSYN [Suspect]
     Active Substance: DOFETILIDE
     Indication: ATRIAL FIBRILLATION
     Dosage: 0.25 MG, 2X/DAY (250MCG (1 CAPSULE) TWICE DAILY, ONCE IN THE MORNING AND EVENING)
     Route: 048
     Dates: start: 2011

REACTIONS (6)
  - Chronic obstructive pulmonary disease [Recovered/Resolved]
  - Influenza [Recovered/Resolved]
  - Cough [Not Recovered/Not Resolved]
  - Product dose omission issue [Unknown]
  - Cardiac failure congestive [Recovered/Resolved]
  - Malaise [Unknown]

NARRATIVE: CASE EVENT DATE: 201902
